FAERS Safety Report 11839799 (Version 1)
Quarter: 2015Q4

REPORT INFORMATION
  Report Type: Spontaneous
  Country: JP (occurrence: JP)
  Receive Date: 20151216
  Receipt Date: 20151216
  Transmission Date: 20160305
  Serious: Yes (Other)
  Sender: FDA-Public Use
  Company Number: JP-ROCHE-1650779

PATIENT
  Age: 61 Year
  Sex: Female

DRUGS (12)
  1. RITUXAN [Suspect]
     Active Substance: RITUXIMAB
     Route: 042
     Dates: start: 20130926
  2. RITUXAN [Suspect]
     Active Substance: RITUXIMAB
     Indication: B-CELL LYMPHOMA
     Dosage: 6 CYCLES
     Route: 042
     Dates: start: 20130527
  3. RITUXAN [Suspect]
     Active Substance: RITUXIMAB
     Route: 042
     Dates: start: 20130627
  4. RITUXAN [Suspect]
     Active Substance: RITUXIMAB
     Route: 042
     Dates: start: 20130822
  5. RITUXAN [Suspect]
     Active Substance: RITUXIMAB
     Dosage: TOTAL 4 DOSES
     Route: 042
     Dates: start: 20150703, end: 20150724
  6. DECADRON [Concomitant]
     Active Substance: DEXAMETHASONE
     Indication: B-CELL LYMPHOMA
     Route: 042
     Dates: start: 20130627, end: 20151030
  7. SOLU-CORTEF [Concomitant]
     Active Substance: HYDROCORTISONE SODIUM SUCCINATE
     Indication: PREMEDICATION
     Dosage: 30 MINUTES BEFORE RITUXIMAB INFUSION
     Route: 042
     Dates: start: 20130527, end: 20130527
  8. BENDAMUSTINE [Suspect]
     Active Substance: BENDAMUSTINE
     Indication: B-CELL LYMPHOMA
     Dosage: 6 CYCLES
     Route: 042
  9. RITUXAN [Suspect]
     Active Substance: RITUXIMAB
     Route: 042
     Dates: start: 20131030
  10. GRANISETRON [Concomitant]
     Active Substance: GRANISETRON
     Dosage: 0 MINUTES BEFORE RITUXIMAB INFUSION
     Route: 042
     Dates: start: 20130627, end: 20131030
  11. ATARAX-P [Concomitant]
     Active Substance: HYDROXYZINE HYDROCHLORIDE
     Indication: PREMEDICATION
     Dosage: 0-30 MINUTES BEFORE RITUXIMAB INFUSION,
     Route: 042
     Dates: start: 20130527, end: 20131030
  12. RITUXAN [Suspect]
     Active Substance: RITUXIMAB
     Route: 042
     Dates: start: 20130725

REACTIONS (3)
  - Epstein-Barr virus associated lymphoproliferative disorder [Recovered/Resolved]
  - Rash [Recovered/Resolved]
  - White blood cell count decreased [Recovered/Resolved]

NARRATIVE: CASE EVENT DATE: 20130705
